FAERS Safety Report 4427693-7 (Version None)
Quarter: 2004Q3

REPORT INFORMATION
  Report Type: 
  Country: None (occurrence: None)
  Receive Date: 20040812
  Receipt Date: 20040730
  Transmission Date: 20050211
  Serious: Yes (Hospitalization, Other)
  Sender: FDA-Public Use
  Company Number: 2004052089

PATIENT
  Age: 62 Year
  Sex: Male
  Weight: 49 kg

DRUGS (1)
  1. PROCARDIA XL [Suspect]
     Indication: ILL-DEFINED DISORDER
     Dosage: ORAL
     Route: 048
     Dates: end: 20040701

REACTIONS (2)
  - HYPERTROPHY [None]
  - INTESTINAL OBSTRUCTION [None]
